FAERS Safety Report 12425850 (Version 1)
Quarter: 2016Q2

REPORT INFORMATION
  Report Type: Spontaneous
  Country: AT (occurrence: AT)
  Receive Date: 20160601
  Receipt Date: 20160601
  Transmission Date: 20160815
  Serious: No
  Sender: FDA-Public Use
  Company Number: AT-PROMETHEUS LABORATORIES-2016PL000022

PATIENT
  Age: 33 Year
  Sex: Female

DRUGS (4)
  1. PROLEUKIN [Suspect]
     Active Substance: ALDESLEUKIN
     Indication: RENAL CELL CARCINOMA
     Dosage: UNK UNKNOWN, UNK
     Dates: end: 2005
  2. BEVACIZUMAB [Concomitant]
     Active Substance: BEVACIZUMAB
  3. PROPRANOLOL HYDROCHLORIDE. [Concomitant]
     Active Substance: PROPRANOLOL HYDROCHLORIDE
  4. IFN ALPHA [Concomitant]

REACTIONS (2)
  - Renal cell carcinoma [Unknown]
  - Malignant neoplasm progression [Unknown]
